FAERS Safety Report 10237864 (Version 7)
Quarter: 2014Q3

REPORT INFORMATION
  Report Type: Report from Study
  Country: DE (occurrence: DE)
  Receive Date: 20140616
  Receipt Date: 20140929
  Transmission Date: 20150326
  Serious: Yes (Death, Life-Threatening, Hospitalization)
  Sender: FDA-Public Use
  Company Number: DE-JNJFOC-20140311974

PATIENT
  Age: 75 Year
  Sex: Male

DRUGS (4)
  1. MORPHINE [Concomitant]
     Active Substance: MORPHINE
     Indication: BONE PAIN
     Dosage: 15 DROPS
     Route: 048
     Dates: start: 20131210
  2. ZYTIGA [Suspect]
     Active Substance: ABIRATERONE ACETATE
     Indication: PROSTATE CANCER METASTATIC
     Dosage: DRUG NUMBER: 001
     Route: 048
     Dates: start: 20131210, end: 20131223
  3. DURAGESIC [Concomitant]
     Active Substance: FENTANYL
     Indication: BONE PAIN
     Route: 062
     Dates: start: 20131210
  4. PREDNISONE. [Suspect]
     Active Substance: PREDNISONE
     Indication: PROSTATE CANCER METASTATIC
     Dosage: DRUG NUMBER: 002
     Route: 048
     Dates: start: 20131210, end: 20131223

REACTIONS (4)
  - General physical health deterioration [Fatal]
  - Oedema peripheral [Recovered/Resolved with Sequelae]
  - Bone pain [Recovered/Resolved]
  - Dyspnoea [Recovered/Resolved with Sequelae]

NARRATIVE: CASE EVENT DATE: 20131223
